FAERS Safety Report 20421517 (Version 2)
Quarter: 2022Q3

REPORT INFORMATION
  Report Type: Spontaneous
  Country: JP (occurrence: JP)
  Receive Date: 20220203
  Receipt Date: 20220714
  Transmission Date: 20221027
  Serious: Yes (Death, Other)
  Sender: FDA-Public Use
  Company Number: JP-ELI_LILLY_AND_COMPANY-JP202202000480

PATIENT

DRUGS (8)
  1. ADCIRCA [Suspect]
     Active Substance: TADALAFIL
     Indication: Prenatal care
     Dosage: 20 MG, DAILY
     Route: 064
  2. ADCIRCA [Suspect]
     Active Substance: TADALAFIL
     Indication: Prenatal care
     Dosage: 20 MG, DAILY
     Route: 064
  3. ADCIRCA [Suspect]
     Active Substance: TADALAFIL
     Dosage: 40 MG, DAILY
     Route: 064
  4. ADCIRCA [Suspect]
     Active Substance: TADALAFIL
     Dosage: 40 MG, DAILY
     Route: 064
  5. METHYLDOPA [Concomitant]
     Active Substance: METHYLDOPA
     Indication: Product used for unknown indication
     Dosage: 1000 MG, UNKNOWN
     Route: 064
  6. METHYLDOPA [Concomitant]
     Active Substance: METHYLDOPA
     Indication: Product used for unknown indication
     Dosage: 1000 MG, UNKNOWN
     Route: 064
  7. NIFEDIPINE [Concomitant]
     Active Substance: NIFEDIPINE
     Indication: Product used for unknown indication
     Dosage: UNK, UNKNOWN
     Route: 064
  8. NIFEDIPINE [Concomitant]
     Active Substance: NIFEDIPINE
     Indication: Product used for unknown indication
     Dosage: UNK, UNKNOWN
     Route: 064

REACTIONS (8)
  - Pulmonary haemorrhage neonatal [Fatal]
  - Low birth weight baby [Unknown]
  - Breech presentation [Unknown]
  - Apgar score low [Unknown]
  - Premature baby [Unknown]
  - Foetal exposure during pregnancy [Recovered/Resolved]
  - Umbilical cord vascular disorder [Unknown]
  - Amniotic fluid volume decreased [Unknown]

NARRATIVE: CASE EVENT DATE: 20211101
